FAERS Safety Report 18065000 (Version 1)
Quarter: 2020Q3

REPORT INFORMATION
  Report Type: Spontaneous
  Country: TW (occurrence: TW)
  Receive Date: 20200724
  Receipt Date: 20200724
  Transmission Date: 20201103
  Serious: Yes (Other)
  Sender: FDA-Public Use
  Company Number: TW-PFIZER INC-2020278474

PATIENT
  Age: 50 Year
  Sex: Female

DRUGS (8)
  1. PALBOCICLIB [Suspect]
     Active Substance: PALBOCICLIB
     Dosage: 100 MG
  2. PALBOCICLIB [Suspect]
     Active Substance: PALBOCICLIB
     Dosage: 75 MG
     Dates: start: 201809, end: 201902
  3. PALBOCICLIB [Suspect]
     Active Substance: PALBOCICLIB
     Indication: BREAST CANCER FEMALE
     Dosage: 125 MG
     Dates: start: 201803
  4. FULVESTRANTUM [Suspect]
     Active Substance: FULVESTRANT
     Indication: BREAST CANCER FEMALE
     Dosage: 500 MG
     Dates: start: 201803
  5. FULVESTRANTUM [Suspect]
     Active Substance: FULVESTRANT
     Dosage: 250 MG
     Dates: start: 201809
  6. ANTRODIA CINNAMOMEA [Concomitant]
     Dosage: 4 MG, DAILY
     Dates: start: 201804
  7. ANTRODIA CINNAMOMEA [Concomitant]
     Dosage: 4 G, 1X/DAY
     Dates: start: 201610, end: 201703
  8. ANTRODIA CINNAMOMEA [Concomitant]
     Dosage: 10 MG, DAILY
     Dates: start: 201805, end: 201811

REACTIONS (11)
  - Dyspnoea [Unknown]
  - Alopecia [Unknown]
  - Neutropenia [Recovered/Resolved]
  - Heart rate increased [Unknown]
  - Thrombocytopenia [Unknown]
  - Anaemia [Unknown]
  - Leukopenia [Recovered/Resolved]
  - Gingival bleeding [Unknown]
  - Hepatotoxicity [Unknown]
  - Neuropathy peripheral [Unknown]
  - Drug hypersensitivity [Unknown]

NARRATIVE: CASE EVENT DATE: 2018
